FAERS Safety Report 9360806 (Version 1)
Quarter: 2013Q2

REPORT INFORMATION
  Report Type: Spontaneous
  Country: US (occurrence: US)
  Receive Date: 20130621
  Receipt Date: 20130621
  Transmission Date: 20140414
  Serious: Yes (Hospitalization, Other)
  Sender: FDA-Public Use
  Company Number: US-ELI_LILLY_AND_COMPANY-US201306004957

PATIENT
  Age: 66 Year
  Sex: Male

DRUGS (14)
  1. HUMALOG LISPRO [Suspect]
     Indication: TYPE 2 DIABETES MELLITUS
     Dosage: UNK, OTHER
  2. LANTUS [Concomitant]
     Dosage: 46 U, EACH EVENING
  3. CYMBALTA [Concomitant]
     Dosage: 60 MG, EACH EVENING
  4. LASIX [Concomitant]
     Dosage: 20 MG, QD
  5. PROTONIX [Concomitant]
     Dosage: 40 MG, QD
  6. POTASSIUM CHLORIDE [Concomitant]
     Dosage: 20 MG, QD
  7. GABAPENTIN [Concomitant]
     Dosage: 600 MG, QID
  8. CRESTOR [Concomitant]
     Dosage: 40 MG, QD
  9. HYDROCODONE [Concomitant]
     Dosage: UNK, TID
  10. RAMIPRIL [Concomitant]
     Dosage: 2.5 MG, QD
  11. ASPIRIN [Concomitant]
     Dosage: 81 MG, QD
  12. MAGNESIUM OXIDE [Concomitant]
     Dosage: UNK, QD
  13. FEOSOL [Concomitant]
     Dosage: 40 MG, QD
  14. B12 [Concomitant]
     Dosage: UNK, MONTHLY (1/M)

REACTIONS (3)
  - Myocardial infarction [Unknown]
  - Cardiac disorder [Unknown]
  - Dyspnoea [Unknown]
